FAERS Safety Report 15391073 (Version 1)
Quarter: 2018Q3

REPORT INFORMATION
  Report Type: Report from Study
  Country: ES (occurrence: ES)
  Receive Date: 20180917
  Receipt Date: 20180917
  Transmission Date: 20181010
  Serious: Yes (Other)
  Sender: FDA-Public Use
  Company Number: ES-ACTELION-A-CH2018-174695

PATIENT
  Age: 22 Year
  Sex: Female
  Weight: 63 kg

DRUGS (7)
  1. VELETRI [Suspect]
     Active Substance: EPOPROSTENOL
     Indication: PULMONARY ARTERIAL HYPERTENSION
     Dosage: 4.5 NG/KG, PER MIN
     Route: 042
     Dates: start: 20180502
  2. TADALAFIL [Concomitant]
     Active Substance: TADALAFIL
     Indication: PULMONARY ARTERIAL HYPERTENSION
     Dosage: 40 MG, QD
     Route: 048
     Dates: start: 20120521
  3. POLARAMINE [Concomitant]
     Active Substance: DEXCHLORPHENIRAMINE MALEATE
     Indication: PROPHYLAXIS
     Dosage: UNK
     Route: 048
     Dates: start: 20180119
  4. FERINJECT [Concomitant]
     Active Substance: FERRIC CARBOXYMALTOSE
     Indication: PROPHYLAXIS
     Dosage: UNK
     Route: 042
     Dates: start: 20180119
  5. SEGURIL [Concomitant]
     Active Substance: FUROSEMIDE
     Indication: PROPHYLAXIS
     Dosage: UNK UNK, PRN
     Route: 048
     Dates: start: 20081227
  6. OPSUMIT [Suspect]
     Active Substance: MACITENTAN
     Indication: PULMONARY ARTERIAL HYPERTENSION
     Dosage: 10 MG, QD
     Route: 048
     Dates: start: 20180428, end: 20180508
  7. OPSUMIT [Suspect]
     Active Substance: MACITENTAN
     Dosage: 10 MG, QD
     Route: 048
     Dates: start: 20180608, end: 20180709

REACTIONS (7)
  - Angioplasty [Recovered/Resolved]
  - Flushing [Recovered/Resolved]
  - Headache [Recovered/Resolved]
  - Swelling face [Recovered/Resolved]
  - Oedema [Not Recovered/Not Resolved]
  - Dyspepsia [Recovered/Resolved]
  - Carotid revascularisation [Recovered/Resolved]

NARRATIVE: CASE EVENT DATE: 20180508
